FAERS Safety Report 4416148-1 (Version None)
Quarter: 2004Q3

REPORT INFORMATION
  Report Type: 
  Country: None (occurrence: None)
  Receive Date: 20040804
  Receipt Date: 20040804
  Transmission Date: 20050211
  Serious: No
  Sender: FDA-Public Use
  Company Number: None

PATIENT
  Age: 53 Year
  Sex: Male

DRUGS (1)
  1. MELLARIL [Suspect]

REACTIONS (2)
  - LIBIDO INCREASED [None]
  - SEXUAL ACTIVITY INCREASED [None]
